FAERS Safety Report 23547411 (Version 4)
Quarter: 2024Q1

REPORT INFORMATION
  Report Type: Spontaneous
  Country: US (occurrence: US)
  Receive Date: 20240221
  Receipt Date: 20240328
  Transmission Date: 20240410
  Serious: No
  Sender: FDA-Public Use
  Company Number: US-BoehringerIngelheim-2024-BI-009592

PATIENT
  Age: 82 Year
  Sex: Female

DRUGS (3)
  1. JARDIANCE [Suspect]
     Active Substance: EMPAGLIFLOZIN
     Indication: Illness
     Route: 065
     Dates: start: 20240117, end: 20240221
  2. JARDIANCE [Suspect]
     Active Substance: EMPAGLIFLOZIN
     Indication: Type 2 diabetes mellitus
  3. INSULIN NOS [Concomitant]
     Active Substance: INSULIN NOS

REACTIONS (3)
  - Blood pressure increased [Not Recovered/Not Resolved]
  - Intentional product use issue [Unknown]
  - Drug ineffective [Not Recovered/Not Resolved]

NARRATIVE: CASE EVENT DATE: 20240101
